FAERS Safety Report 8345953-4 (Version None)
Quarter: 2012Q2

REPORT INFORMATION
  Report Type: 
  Country: None (occurrence: None)
  Receive Date: 20120507
  Receipt Date: 20120502
  Transmission Date: 20120825
  Serious: Yes (Death)
  Sender: FDA-Public Use
  Company Number: 2012SP023212

PATIENT
  Age: 30 Year
  Sex: Female

DRUGS (6)
  1. ESCITALOPRAM OXALATE [Suspect]
     Indication: DEPRESSION
     Dosage: 10 MG;QID;PO
     Route: 048
     Dates: start: 20050101
  2. REMERON [Suspect]
     Indication: DEPRESSION
     Dosage: 15 MG;QD;PO
     Route: 048
     Dates: start: 20050101
  3. CHANTIX [Suspect]
     Indication: WITHDRAWAL SYNDROME
     Dosage: PO
     Route: 048
     Dates: start: 20120101, end: 20120301
  4. IMOVANE [Concomitant]
  5. TEMESTA [Concomitant]
  6. RITALIN [Suspect]
     Indication: PRODUCT USED FOR UNKNOWN INDICATION
     Dosage: PO
     Route: 048

REACTIONS (2)
  - DEPRESSION [None]
  - COMPLETED SUICIDE [None]
